FAERS Safety Report 6085444-7 (Version None)
Quarter: 2009Q1

REPORT INFORMATION
  Report Type: 
  Country: None (occurrence: None)
  Receive Date: 20090220
  Receipt Date: 20090212
  Transmission Date: 20090719
  Serious: Yes (Life-Threatening)
  Sender: FDA-Public Use
  Company Number: JP-ABBOTT-09P-087-0557944-00

PATIENT
  Age: 72 Year
  Sex: Male

DRUGS (10)
  1. LEUPROLIDE ACETATE [Suspect]
     Indication: PROSTATE CANCER STAGE III
     Route: 058
     Dates: start: 20070216
  2. BLOPRESS [Concomitant]
     Indication: HYPERTENSION
     Route: 048
     Dates: end: 20080807
  3. BLOPRESS [Concomitant]
     Route: 048
     Dates: start: 20080808
  4. CASODEX [Concomitant]
     Indication: PROSTATE CANCER STAGE III
     Route: 048
  5. NORVASC [Concomitant]
     Indication: HYPERTENSION
     Route: 048
     Dates: end: 20080807
  6. NORVASC [Concomitant]
     Route: 048
     Dates: start: 20080808
  7. ASPIRIN [Concomitant]
     Indication: MYOCARDIAL INFARCTION
     Route: 048
  8. ISOCORONAL R [Concomitant]
     Indication: MYOCARDIAL INFARCTION
     Route: 048
     Dates: end: 20080321
  9. ARTIST [Concomitant]
     Indication: HYPERTENSION
     Route: 048
     Dates: start: 20080808
  10. LASIX [Concomitant]
     Indication: HYPERTENSION
     Route: 048
     Dates: start: 20080808

REACTIONS (3)
  - AORTIC ANEURYSM [None]
  - ARRHYTHMIA [None]
  - CONSTIPATION [None]
